FAERS Safety Report 25982152 (Version 2)
Quarter: 2025Q4

REPORT INFORMATION
  Report Type: Spontaneous
  Country: JP (occurrence: JP)
  Receive Date: 20251031
  Receipt Date: 20251114
  Transmission Date: 20260117
  Serious: Yes (Life-Threatening, Hospitalization, Other)
  Sender: GLAXOSMITHKLINE
  Company Number: JP-GSK-JP2025139924

PATIENT
  Sex: Female

DRUGS (2)
  1. MOMELOTINIB [Suspect]
     Active Substance: MOMELOTINIB
     Indication: Myelofibrosis
     Dosage: 200 MG, 1D
  2. AGRYLIN [Concomitant]
     Active Substance: ANAGRELIDE HYDROCHLORIDE
     Indication: Essential thrombocythaemia
     Dosage: UNK

REACTIONS (2)
  - Aortic dissection [Recovered/Resolved]
  - Paralysis [Unknown]

NARRATIVE: CASE EVENT DATE: 20250901
